FAERS Safety Report 11469741 (Version 1)
Quarter: 2015Q3

REPORT INFORMATION
  Report Type: Spontaneous
  Country: US (occurrence: US)
  Receive Date: 20150908
  Receipt Date: 20150908
  Transmission Date: 20151125
  Serious: No
  Sender: FDA-Public Use
  Company Number: US-JNJFOC-20150723448

PATIENT
  Age: 55 Year
  Sex: Female
  Weight: 86.18 kg

DRUGS (2)
  1. ZYRTEC [Suspect]
     Active Substance: CETIRIZINE HYDROCHLORIDE
     Indication: INCREASED UPPER AIRWAY SECRETION
     Dosage: TOOK ANOTHER TABLET 18 HOURS APART
     Route: 048
     Dates: start: 20150729, end: 20150730
  2. ZYRTEC [Suspect]
     Active Substance: CETIRIZINE HYDROCHLORIDE
     Indication: THROAT IRRITATION
     Dosage: TOOK ANOTHER TABLET 18 HOURS APART
     Route: 048
     Dates: start: 20150729, end: 20150730

REACTIONS (1)
  - Inappropriate schedule of drug administration [Unknown]
